FAERS Safety Report 9260070 (Version 2)
Quarter: 2013Q2

REPORT INFORMATION
  Report Type: Report from Study
  Country: BR (occurrence: BR)
  Receive Date: 20130429
  Receipt Date: 20130501
  Transmission Date: 20140414
  Serious: Yes (Other)
  Sender: FDA-Public Use
  Company Number: BR-ROCHE-1185609

PATIENT
  Age: 66 Year
  Sex: Female
  Weight: 67.3 kg

DRUGS (15)
  1. BLINDED TOCILIZUMAB [Suspect]
     Indication: RHEUMATOID ARTHRITIS
     Dosage: DATE OF MOST RECENT DOSE : 19/DEC/2011
     Route: 058
     Dates: start: 20110810
  2. TOCILIZUMAB [Suspect]
     Indication: RHEUMATOID ARTHRITIS
     Dosage: DATE OF MOST RECENT DOSE:19/DEC/2012 AT 162MG, AUTO INJECTOR METHOD
     Route: 058
     Dates: start: 20120208, end: 20130128
  3. METHOTREXATE [Suspect]
     Indication: PRODUCT USED FOR UNKNOWN INDICATION
     Route: 065
  4. ETANERCEPT [Suspect]
     Indication: PRODUCT USED FOR UNKNOWN INDICATION
     Route: 065
  5. LEFLUNOMIDE [Suspect]
     Indication: RHEUMATOID ARTHRITIS
     Route: 048
     Dates: start: 2009
  6. PREDNISONE [Concomitant]
     Indication: RHEUMATOID ARTHRITIS
     Route: 048
     Dates: start: 2009
  7. CAPTOPRIL [Concomitant]
     Route: 048
     Dates: start: 2001
  8. METFORMIN [Concomitant]
     Route: 048
     Dates: start: 2008
  9. OMEPRAZOLE [Concomitant]
     Route: 048
     Dates: start: 2001
  10. GLICLAZIDE [Concomitant]
     Route: 048
     Dates: start: 20110817
  11. CALCIUM CARBONATE [Concomitant]
     Route: 048
     Dates: start: 20110908
  12. VITAMIN D3 [Concomitant]
     Route: 048
     Dates: start: 20110908
  13. FLUOXETINE [Concomitant]
     Route: 048
     Dates: start: 20120309
  14. CYCLOBENZAPRINE [Concomitant]
     Route: 048
     Dates: start: 20120309
  15. MYLANTA PLUS [Concomitant]
     Route: 048
     Dates: start: 20120626

REACTIONS (1)
  - Anal squamous cell carcinoma [Unknown]
